FAERS Safety Report 7573546-5 (Version None)
Quarter: 2011Q2

REPORT INFORMATION
  Report Type: 
  Country: None (occurrence: None)
  Receive Date: 20110627
  Receipt Date: 20110620
  Transmission Date: 20111010
  Serious: Yes (Life-Threatening, Hospitalization)
  Sender: FDA-Public Use
  Company Number: PHHY2011CN55768

PATIENT
  Age: 48 Year
  Sex: Male

DRUGS (1)
  1. CARBAMAZEPINE [Suspect]
     Dosage: UNK UKN, UNK

REACTIONS (21)
  - PLEURISY [None]
  - MUSCULAR WEAKNESS [None]
  - CRANIAL NERVE DISORDER [None]
  - UNRESPONSIVE TO STIMULI [None]
  - ANTICONVULSANT DRUG LEVEL INCREASED [None]
  - CARDIAC FAILURE [None]
  - RESPIRATORY DEPRESSION [None]
  - COMA SCALE ABNORMAL [None]
  - EXTENSOR PLANTAR RESPONSE [None]
  - TOXICITY TO VARIOUS AGENTS [None]
  - DYSPNOEA [None]
  - ACUTE RESPIRATORY FAILURE [None]
  - LUNG INFILTRATION [None]
  - PUPILLARY REFLEX IMPAIRED [None]
  - NEUTROPHIL PERCENTAGE INCREASED [None]
  - OVERDOSE [None]
  - CARDIOGENIC SHOCK [None]
  - MULTI-ORGAN FAILURE [None]
  - COMA [None]
  - PO2 DECREASED [None]
  - SENSORY DISTURBANCE [None]
